FAERS Safety Report 20963729 (Version 1)
Quarter: 2022Q2

REPORT INFORMATION
  Report Type: Spontaneous
  Country: US (occurrence: None)
  Receive Date: 20220615
  Receipt Date: 20220615
  Transmission Date: 20220721
  Serious: Yes (Hospitalization)
  Sender: FDA-Public Use
  Company Number: None

PATIENT
  Age: 29 Year
  Sex: Female

DRUGS (3)
  1. DEFERASIROX [Suspect]
     Active Substance: DEFERASIROX
     Indication: Sickle cell disease
     Dosage: TAKE 4 TABLETS BY MOUTH ONCE A DAY, MIX IN 1 CUP OF WATER OR JUICE.  TAKE ON AN EMPTY STOMACH AT LEA
     Route: 048
  2. FOLIC ACID TAB [Concomitant]
  3. HYDROXYUREA CAP [Concomitant]

REACTIONS (2)
  - Therapy interrupted [None]
  - Sickle cell disease [None]

NARRATIVE: CASE EVENT DATE: 20220601
